FAERS Safety Report 11054915 (Version 1)
Quarter: 2015Q2

REPORT INFORMATION
  Report Type: Spontaneous
  Country: US (occurrence: None)
  Receive Date: 20150421
  Receipt Date: 20150421
  Transmission Date: 20150821
  Serious: No
  Sender: FDA-Public Use
  Company Number: None

PATIENT
  Age: 56 Year
  Sex: Female
  Weight: 63.5 kg

DRUGS (2)
  1. TERCONAZOLE. [Suspect]
     Active Substance: TERCONAZOLE
     Indication: FUNGAL INFECTION
     Dosage: 20 AT BEDTIME FOR 3 CONSECUTIVE DAYS ONE APPLICATIONFUL
     Dates: start: 20150108, end: 20150109
  2. CALCIUM + D3 [Concomitant]
     Active Substance: CALCIUM\CHOLECALCIFEROL

REACTIONS (4)
  - Pain [None]
  - Swelling [None]
  - Secretion discharge [None]
  - Burning sensation [None]

NARRATIVE: CASE EVENT DATE: 20150109
